FAERS Safety Report 9252199 (Version 2)
Quarter: 2013Q3

REPORT INFORMATION
  Report Type: Report from Study
  Country: FR (occurrence: FR)
  Receive Date: 20130424
  Receipt Date: 20130709
  Transmission Date: 20140515
  Serious: Yes (Hospitalization, Other)
  Sender: FDA-Public Use
  Company Number: FR-AMGEN-FRACT2013028519

PATIENT
  Age: 61 Year
  Sex: Male

DRUGS (4)
  1. ETANERCEPT [Suspect]
     Indication: RHEUMATOID ARTHRITIS
     Dosage: 25 MG, 2 TIMES/WK
     Route: 065
     Dates: start: 200508, end: 200702
  2. ETANERCEPT [Suspect]
     Dosage: 50 MG, UNK
     Route: 065
     Dates: start: 200703, end: 200709
  3. ETANERCEPT [Suspect]
     Dosage: 50 MG, QWK
     Route: 065
     Dates: start: 200711, end: 200902
  4. METHOTREXATE [Concomitant]
     Dosage: 10 MG, WEEKLY
     Dates: start: 200412, end: 200709

REACTIONS (2)
  - Lung disorder [Recovered/Resolved]
  - Prostate cancer [Recovered/Resolved]
